FAERS Safety Report 23973525 (Version 9)
Quarter: 2025Q3

REPORT INFORMATION
  Report Type: Report from Study
  Country: CA (occurrence: CA)
  Receive Date: 20240613
  Receipt Date: 20250803
  Transmission Date: 20251021
  Serious: Yes (Other)
  Sender: ALEXION PHARMACEUTICALS
  Company Number: 2024A089902

PATIENT
  Sex: Male

DRUGS (2)
  1. BENRALIZUMAB [Suspect]
     Active Substance: BENRALIZUMAB
     Indication: Asthma
  2. BENRALIZUMAB [Suspect]
     Active Substance: BENRALIZUMAB

REACTIONS (9)
  - Hypertension [Unknown]
  - Pruritus [Unknown]
  - Vomiting [Unknown]
  - Paraesthesia [Unknown]
  - Dyspnoea [Unknown]
  - Sinusitis [Recovered/Resolved]
  - Drug ineffective [Unknown]
  - Blood pressure systolic [Unknown]
  - Blood pressure diastolic [Unknown]
